FAERS Safety Report 9528778 (Version 1)
Quarter: 2013Q1

REPORT INFORMATION
  Report Type: Spontaneous
  Country: US (occurrence: None)
  Receive Date: 20130314
  Receipt Date: 20130314
  Transmission Date: 20140127
  Serious: Yes (Other)
  Sender: FDA-Public Use
  Company Number: 1212USA000478

PATIENT
  Age: 60 Year
  Sex: Female

DRUGS (3)
  1. VICTRELIS [Suspect]
     Indication: HEPATITIS C
     Dates: start: 20121102
  2. RIBAVIRIN (RIBAVIRIN) CAPSULE [Suspect]
     Dates: start: 20121005
  3. PEGASYS (PEGINTERFERON ALFA-2A) [Suspect]
     Dates: start: 20121005

REACTIONS (6)
  - Throat irritation [None]
  - Stomatitis [None]
  - Oropharyngeal pain [None]
  - Asthenia [None]
  - Anaemia [None]
  - Leukopenia [None]
